FAERS Safety Report 12559878 (Version 2)
Quarter: 2016Q3

REPORT INFORMATION
  Report Type: Report from Study
  Country: GB (occurrence: GB)
  Receive Date: 20160715
  Receipt Date: 20160922
  Transmission Date: 20161109
  Serious: Yes (Death, Hospitalization, Other)
  Sender: FDA-Public Use
  Company Number: GB-AMGEN-GBRSL2016089149

PATIENT
  Age: 66 Year
  Sex: Female

DRUGS (1)
  1. ARANESP [Suspect]
     Active Substance: DARBEPOETIN ALFA
     Indication: PRODUCT USED FOR UNKNOWN INDICATION
     Dosage: 100 MUG, UNK
     Route: 065

REACTIONS (6)
  - Death [Fatal]
  - Thrombosis [Unknown]
  - Arthritis infective [Unknown]
  - Dialysis [Unknown]
  - Myocardial infarction [Unknown]
  - Sepsis [Unknown]

NARRATIVE: CASE EVENT DATE: 20160828
